FAERS Safety Report 7367524-9 (Version None)
Quarter: 2011Q1

REPORT INFORMATION
  Report Type: 
  Country: None (occurrence: None)
  Receive Date: 20110322
  Receipt Date: 20100909
  Transmission Date: 20110831
  Serious: Yes (Hospitalization, Other)
  Sender: FDA-Public Use
  Company Number: US-BAYER-201019435NA

PATIENT
  Sex: Female
  Weight: 67.574 kg

DRUGS (3)
  1. YASMIN [Suspect]
     Indication: PREMENSTRUAL SYNDROME
  2. IBUPROFEN [Concomitant]
  3. YASMIN [Suspect]
     Indication: CONTRACEPTION
     Dosage: UNK UNK, QD
     Route: 048
     Dates: start: 20040601, end: 20060101

REACTIONS (7)
  - MUSCLE SPASMS [None]
  - ABDOMINAL PAIN UPPER [None]
  - CHOLELITHIASIS [None]
  - HYPERHIDROSIS [None]
  - GALLBLADDER DISORDER [None]
  - VOMITING [None]
  - BILE DUCT STONE [None]
